FAERS Safety Report 25389268 (Version 3)
Quarter: 2025Q3

REPORT INFORMATION
  Report Type: Spontaneous
  Country: JP (occurrence: JP)
  Receive Date: 20250603
  Receipt Date: 20250804
  Transmission Date: 20251021
  Serious: Yes (Other)
  Sender: ROCHE
  Company Number: JP-CHUGAI-2025017003

PATIENT
  Age: 9 Decade
  Sex: Male

DRUGS (1)
  1. HEMLIBRA [Suspect]
     Active Substance: EMICIZUMAB-KXWH
     Indication: Acquired haemophilia
     Route: 058

REACTIONS (2)
  - Arterial haemorrhage [Recovered/Resolved]
  - Haematuria [Recovered/Resolved]
